FAERS Safety Report 9234134 (Version 1)
Quarter: 2013Q1

REPORT INFORMATION
  Report Type: Spontaneous
  Country: US (occurrence: US)
  Receive Date: 20121031
  Receipt Date: 20121031
  Transmission Date: 20140127
  Serious: No
  Sender: FDA-Public Use
  Company Number: PHEH2012US012695

PATIENT
  Sex: Female
  Weight: 88.4 kg

DRUGS (2)
  1. GILENYA [Suspect]
     Indication: MULTIPLE SCLEROSIS
     Route: 048
  2. RITALIN (METHYLPHENIDATE HYDROCHLORIDE) [Concomitant]

REACTIONS (5)
  - Somnolence [None]
  - Musculoskeletal stiffness [None]
  - Fatigue [None]
  - Visual impairment [None]
  - Arthropathy [None]
